FAERS Safety Report 4499138-2 (Version None)
Quarter: 2004Q4

REPORT INFORMATION
  Report Type: 
  Country: None (occurrence: None)
  Receive Date: 20041111
  Receipt Date: 20041105
  Transmission Date: 20050328
  Serious: Yes (Hospitalization)
  Sender: FDA-Public Use
  Company Number: US-MERCK-0411USA00954

PATIENT
  Age: 80 Year
  Sex: Male

DRUGS (4)
  1. VIOXX [Suspect]
     Indication: PAIN IN EXTREMITY
     Route: 048
     Dates: start: 20040101, end: 20041001
  2. METOPROLOL [Concomitant]
     Route: 065
  3. ZOCOR [Concomitant]
     Route: 065
  4. LASIX [Concomitant]
     Route: 065

REACTIONS (5)
  - CARDIAC DISORDER [None]
  - DIZZINESS [None]
  - FALL [None]
  - INFECTION [None]
  - PALPITATIONS [None]
